FAERS Safety Report 6509525-6 (Version None)
Quarter: 2009Q4

REPORT INFORMATION
  Report Type: 
  Country: None (occurrence: None)
  Receive Date: 20091217
  Receipt Date: 20091203
  Transmission Date: 20100525
  Serious: Yes (Hospitalization, Other)
  Sender: FDA-Public Use
  Company Number: B0614655A

PATIENT
  Age: 58 Year
  Sex: Male

DRUGS (4)
  1. PROPAFENONE HYDROCHLORIDE   (FORMULATION UNKNOWN) (GENERIC) [Suspect]
     Indication: ATRIAL FIBRILLATION
     Dosage: 300 MG / TWICE PER DAY
  2. DIGOXIN [Concomitant]
  3. BISOPROLOL [Concomitant]
  4. WARFARIN SODIUM [Concomitant]

REACTIONS (8)
  - ATRIAL TACHYCARDIA [None]
  - CHEST DISCOMFORT [None]
  - ELECTROCARDIOGRAM QRS COMPLEX SHORTENED [None]
  - FALL [None]
  - MALAISE [None]
  - PALLOR [None]
  - PALPITATIONS [None]
  - PRESYNCOPE [None]
